FAERS Safety Report 16077748 (Version 1)
Quarter: 2019Q1

REPORT INFORMATION
  Report Type: Spontaneous
  Country: GB (occurrence: GB)
  Receive Date: 20190315
  Receipt Date: 20190315
  Transmission Date: 20190418
  Serious: Yes (Disabling)
  Sender: FDA-Public Use
  Company Number: GB-PFIZER INC-2019110370

PATIENT
  Age: 55 Year
  Sex: Male
  Weight: 74 kg

DRUGS (10)
  1. OMEPRAZOLE. [Concomitant]
     Active Substance: OMEPRAZOLE
     Dosage: 1 DF, 1X/DAY
     Dates: start: 20180412
  2. THIAMINE. [Concomitant]
     Active Substance: THIAMINE
     Dosage: 3 DF, 1X/DAY
     Dates: start: 20180412
  3. FUROSEMIDE. [Concomitant]
     Active Substance: FUROSEMIDE
     Dosage: 1 DF, 1X/DAY (EACH MORNING)
     Dates: start: 20190213
  4. VITAMIN B [Concomitant]
     Active Substance: VITAMIN B
     Dosage: 1 DF, UNK (TO BE TAKEN TWICE TO BE TAKEN THREE TIMES)
     Dates: start: 20180412
  5. BENZOYL PEROXIDE. [Concomitant]
     Active Substance: BENZOYL PEROXIDE
     Dosage: 1 DF, 1X/DAY (AT NIGHT ON SPOTS ON THE BACK CAN CAUSE BL...)
     Dates: start: 20190213
  6. SERTRALINE [Concomitant]
     Active Substance: SERTRALINE HYDROCHLORIDE
     Dosage: 1 DF, 1X/DAY
     Dates: start: 20190130
  7. SPIRONOLACTONE. [Suspect]
     Active Substance: SPIRONOLACTONE
     Dosage: 100 MG, 1X/DAY
     Dates: start: 20190208
  8. RAMIPRIL. [Concomitant]
     Active Substance: RAMIPRIL
     Dosage: 1 DF, 1X/DAY
     Dates: start: 20180412
  9. LOPERAMIDE [Concomitant]
     Active Substance: LOPERAMIDE
     Dosage: DAILY (TAKE ONE OR TWO A DAY.)
     Dates: start: 20180412
  10. BISOPROLOL [Concomitant]
     Active Substance: BISOPROLOL
     Dosage: 1 DF, 1X/DAY
     Dates: start: 20180412

REACTIONS (1)
  - Muscle spasms [Not Recovered/Not Resolved]

NARRATIVE: CASE EVENT DATE: 2019
